FAERS Safety Report 10446642 (Version 1)
Quarter: 2014Q3

REPORT INFORMATION
  Report Type: Spontaneous
  Country: US (occurrence: US)
  Receive Date: 20140911
  Receipt Date: 20140911
  Transmission Date: 20150326
  Serious: Yes (Other)
  Sender: FDA-Public Use
  Company Number: US-AUROBINDO-AUR-APL-2014-09532

PATIENT
  Age: 14 Year
  Sex: Female

DRUGS (1)
  1. OXYCODONE [Suspect]
     Active Substance: OXYCODONE
     Indication: PRODUCT USED FOR UNKNOWN INDICATION
     Route: 048

REACTIONS (6)
  - Central nervous system lesion [Recovered/Resolved]
  - Encephalopathy [Recovered/Resolved]
  - Akathisia [Recovered/Resolved]
  - Ballismus [Recovered/Resolved]
  - Cognitive disorder [Recovered/Resolved]
  - Movement disorder [Recovered/Resolved]
